FAERS Safety Report 12089507 (Version 1)
Quarter: 2016Q1

REPORT INFORMATION
  Report Type: Spontaneous
  Country: US (occurrence: US)
  Receive Date: 20160218
  Receipt Date: 20160218
  Transmission Date: 20160526
  Serious: No
  Sender: FDA-Public Use
  Company Number: PHEH2016US003700

PATIENT
  Sex: Female

DRUGS (2)
  1. STALEVO [Suspect]
     Active Substance: CARBIDOPA\ENTACAPONE\LEVODOPA
     Indication: PARKINSON^S DISEASE
     Dosage: 75 MG, QID
     Route: 048
  2. STALEVO [Suspect]
     Active Substance: CARBIDOPA\ENTACAPONE\LEVODOPA
     Dosage: 100 MG, QD
     Route: 048

REACTIONS (11)
  - Dyskinesia [Unknown]
  - Wound secretion [Unknown]
  - Feeling abnormal [Unknown]
  - Erythema [Unknown]
  - Reaction to colouring [Unknown]
  - Frustration tolerance decreased [Unknown]
  - Pain [Unknown]
  - Blister [Unknown]
  - Skin disorder [Unknown]
  - Restlessness [Unknown]
  - Malaise [Unknown]
